FAERS Safety Report 12329007 (Version 1)
Quarter: 2016Q2

REPORT INFORMATION
  Report Type: Report from Study
  Country: BR (occurrence: BR)
  Receive Date: 20160503
  Receipt Date: 20160503
  Transmission Date: 20160815
  Serious: Yes (Hospitalization, Other)
  Sender: FDA-Public Use
  Company Number: PHHY2015BR124150

PATIENT
  Age: 72 Year
  Sex: Female
  Weight: 76 kg

DRUGS (3)
  1. ACLASTA [Suspect]
     Active Substance: ZOLEDRONIC ACID
     Dosage: UNK
     Route: 065
     Dates: start: 201601
  2. ACLASTA [Suspect]
     Active Substance: ZOLEDRONIC ACID
     Dosage: UNK
     Route: 065
     Dates: start: 201502, end: 201502
  3. ACLASTA [Suspect]
     Active Substance: ZOLEDRONIC ACID
     Indication: OSTEOPOROSIS
     Dosage: 1 DF, Q12MO
     Route: 065
     Dates: start: 2014

REACTIONS (7)
  - Diabetes mellitus [Recovering/Resolving]
  - Pyrexia [Recovering/Resolving]
  - Blood pressure inadequately controlled [Recovering/Resolving]
  - Malaise [Recovering/Resolving]
  - Maculopathy [Unknown]
  - Visual impairment [Unknown]
  - Feeling abnormal [Recovering/Resolving]

NARRATIVE: CASE EVENT DATE: 201502
